FAERS Safety Report 9788010 (Version 1)
Quarter: 2013Q4

REPORT INFORMATION
  Report Type: Spontaneous
  Country: US (occurrence: None)
  Receive Date: 20131227
  Receipt Date: 20131227
  Transmission Date: 20140711
  Serious: Yes (Disabling)
  Sender: FDA-Public Use
  Company Number: None

PATIENT
  Age: 74 Year
  Sex: Female
  Weight: 89.7 kg

DRUGS (3)
  1. RIVAROXABAN [Suspect]
     Indication: ATRIAL FIBRILLATION
     Route: 048
     Dates: start: 20130228, end: 20130303
  2. LOVENOX [Suspect]
     Indication: THROMBOSIS PROPHYLAXIS
     Route: 058
     Dates: start: 20130228
  3. LOVENOX [Suspect]
     Indication: ATRIAL FIBRILLATION
     Route: 058
     Dates: start: 20130228

REACTIONS (9)
  - CSF test abnormal [None]
  - Haemorrhage [None]
  - Muscle spasms [None]
  - Asthenia [None]
  - Spinal cord compression [None]
  - Haemorrhagic arteriovenous malformation [None]
  - Arteriovenous fistula [None]
  - Cough [None]
  - Paraplegia [None]
